FAERS Safety Report 9862019 (Version 1)
Quarter: 2014Q1

REPORT INFORMATION
  Report Type: Spontaneous
  Country: US (occurrence: None)
  Receive Date: 20140130
  Receipt Date: 20140130
  Transmission Date: 20141002
  Serious: Yes (Death)
  Sender: FDA-Public Use
  Company Number: 2014AP000562

PATIENT
  Age: 67 Year
  Sex: Male

DRUGS (6)
  1. CITALOPRAM HYDROBROMIDE TABLETS [Suspect]
     Route: 048
  2. BENAZEPRIL [Suspect]
     Route: 048
  3. VENLAFAXINE [Suspect]
     Route: 048
  4. OXYCODONE [Suspect]
     Route: 048
  5. ACETAMINOPHEN W/CODEINE [Suspect]
     Route: 048
  6. WARFARIN [Suspect]
     Route: 048

REACTIONS (1)
  - Completed suicide [None]
